FAERS Safety Report 7887733-X (Version None)
Quarter: 2011Q4

REPORT INFORMATION
  Report Type: 
  Country: None (occurrence: None)
  Receive Date: 20111101
  Receipt Date: 20111024
  Transmission Date: 20120403
  Serious: Yes (Hospitalization, Other)
  Sender: FDA-Public Use
  Company Number: WAES 1110USA03864

PATIENT
  Age: 61 Year
  Sex: Male
  Weight: 122.9248 kg

DRUGS (8)
  1. FUROSEMIDE [Concomitant]
  2. HYDRALAZINE HCL [Concomitant]
  3. CYANOCOBALAMIN [Concomitant]
  4. INVANZ [Suspect]
     Indication: SKIN BACTERIAL INFECTION
     Dosage: 1 GM/BID/IV
     Route: 042
     Dates: start: 20110503, end: 20110509
  5. CIPROFLOXACIN [Suspect]
     Indication: SKIN BACTERIAL INFECTION
     Dosage: 200 MG/BID/IV
     Route: 042
     Dates: start: 20110509, end: 20110518
  6. VANCOMYCIN [Suspect]
     Indication: SKIN BACTERIAL INFECTION
     Dosage: 1 GM/BID/IV
     Route: 042
     Dates: start: 20110503, end: 20110506
  7. ASCORBIC ACID [Concomitant]
  8. FOLIC ACID [Concomitant]

REACTIONS (4)
  - INTRACRANIAL ANEURYSM [None]
  - RENAL FAILURE ACUTE [None]
  - THROMBOCYTOPENIA [None]
  - CEREBROVASCULAR ACCIDENT [None]
